FAERS Safety Report 5357595-3 (Version None)
Quarter: 2007Q2

REPORT INFORMATION
  Report Type: 
  Country: None (occurrence: None)
  Receive Date: 20070614
  Receipt Date: 20070604
  Transmission Date: 20071010
  Serious: Yes (Other)
  Sender: FDA-Public Use
  Company Number: US-PFIZER INC-2007046390

PATIENT
  Sex: Male
  Weight: 72.6 kg

DRUGS (1)
  1. DILANTIN [Suspect]
     Indication: CONVULSION

REACTIONS (2)
  - DYSPHAGIA [None]
  - LIP AND/OR ORAL CAVITY CANCER [None]
